FAERS Safety Report 4792896-9 (Version None)
Quarter: 2005Q4

REPORT INFORMATION
  Report Type: 
  Country: None (occurrence: None)
  Receive Date: 20051010
  Receipt Date: 20050908
  Transmission Date: 20060501
  Serious: Yes (Hospitalization, Other)
  Sender: FDA-Public Use
  Company Number: PHEH2005US10039

PATIENT
  Age: 37 Year
  Sex: Male
  Weight: 73 kg

DRUGS (3)
  1. LOTREL [Suspect]
     Indication: HYPERTENSION
     Dosage: 5/10MG, QD
     Route: 048
     Dates: start: 20010810
  2. ALLEGRA [Concomitant]
  3. ASPIRIN [Concomitant]
     Dosage: UNK, QD
     Dates: start: 20010101

REACTIONS (20)
  - ASTHMA [None]
  - ATELECTASIS [None]
  - CHEST PAIN [None]
  - CHILLS [None]
  - COLLAPSE OF LUNG [None]
  - DYSPNOEA [None]
  - EMPHYSEMA [None]
  - FATIGUE [None]
  - HEADACHE [None]
  - HYPERTENSION [None]
  - IRRITABILITY [None]
  - LIBIDO DECREASED [None]
  - LUNG OPERATION [None]
  - PLEURODESIS [None]
  - PNEUMONIA [None]
  - PNEUMOTHORAX SPONTANEOUS TENSION [None]
  - POISONING [None]
  - PRODUCTIVE COUGH [None]
  - PYREXIA [None]
  - RESPIRATORY DISTRESS [None]
